FAERS Safety Report 7436179-7 (Version None)
Quarter: 2011Q2

REPORT INFORMATION
  Report Type: 
  Country: None (occurrence: None)
  Receive Date: 20110425
  Receipt Date: 20110418
  Transmission Date: 20111010
  Serious: Yes (Disabling, Other)
  Sender: FDA-Public Use
  Company Number: US-MERCK-1008USA01076

PATIENT
  Age: 78 Year
  Sex: Male
  Weight: 81 kg

DRUGS (3)
  1. ALENDRONATE SODIUM [Suspect]
     Indication: OSTEOPOROSIS
     Route: 048
     Dates: start: 20031105, end: 20061201
  2. FOSAMAX [Suspect]
     Indication: OSTEOPOROSIS PROPHYLAXIS
     Route: 048
     Dates: start: 20030101, end: 20040501
  3. FOSAMAX [Suspect]
     Route: 048
     Dates: start: 20040721, end: 20070101

REACTIONS (46)
  - BLOOD URINE PRESENT [None]
  - DEPRESSION [None]
  - EAR PAIN [None]
  - BLOOD TESTOSTERONE DECREASED [None]
  - TESTICULAR PAIN [None]
  - HYPERTENSION [None]
  - HYPOTHYROIDISM [None]
  - LOOSE TOOTH [None]
  - OSTEONECROSIS OF JAW [None]
  - SKIN DISORDER [None]
  - RHINORRHOEA [None]
  - MICTURITION URGENCY [None]
  - IMPAIRED HEALING [None]
  - ERECTILE DYSFUNCTION [None]
  - FATIGUE [None]
  - GASTROENTERITIS RADIATION [None]
  - TREMOR [None]
  - NASAL CONGESTION [None]
  - MALIGNANT MELANOMA [None]
  - ABSCESS [None]
  - BIPOLAR I DISORDER [None]
  - BRONCHITIS [None]
  - DENTAL FISTULA [None]
  - WEIGHT INCREASED [None]
  - HYPOGONADISM MALE [None]
  - SQUAMOUS CELL CARCINOMA [None]
  - CONSTIPATION [None]
  - RADICULAR CYST [None]
  - COUGH [None]
  - HAEMORRHOIDS [None]
  - JOINT SWELLING [None]
  - ARRHYTHMIA [None]
  - CARDIAC MURMUR [None]
  - CERUMEN IMPACTION [None]
  - DIARRHOEA [None]
  - SENSITIVITY OF TEETH [None]
  - HAEMORRHAGE [None]
  - OSTEOARTHRITIS [None]
  - EMPHYSEMA [None]
  - PERIODONTAL DISEASE [None]
  - POLLAKIURIA [None]
  - ANAL PRURITUS [None]
  - MELANOCYTIC NAEVUS [None]
  - GINGIVAL BLEEDING [None]
  - HYPERLIPIDAEMIA [None]
  - JAW DISORDER [None]
